FAERS Safety Report 4300283-2 (Version None)
Quarter: 2004Q1

REPORT INFORMATION
  Report Type: 
  Country: None (occurrence: None)
  Receive Date: 20040218
  Receipt Date: 20040204
  Transmission Date: 20041129
  Serious: Yes (Hospitalization)
  Sender: FDA-Public Use
  Company Number: US_991030456

PATIENT
  Age: 55 Year
  Sex: Male

DRUGS (14)
  1. HUMULIN R [Suspect]
     Indication: DIABETES MELLITUS INSULIN-DEPENDENT
  2. HUMALOG [Suspect]
     Indication: DIABETES MELLITUS INSULIN-DEPENDENT
     Dates: start: 19980101
  3. HUMULIN N [Suspect]
     Indication: DIABETES MELLITUS INSULIN-DEPENDENT
  4. CYCLOSPORINE [Concomitant]
  5. CELLCEPT [Concomitant]
  6. PREDNISONE [Concomitant]
  7. PRAVACHOL [Concomitant]
  8. TRENTAL [Concomitant]
  9. COUMADIN [Concomitant]
  10. IMDUR [Concomitant]
  11. SPIRONOLACTONE [Concomitant]
  12. ALTACE [Concomitant]
  13. SEPTRA [Concomitant]
  14. MYCELEX [Concomitant]

REACTIONS (5)
  - BLOOD GLUCOSE INCREASED [None]
  - MALAISE [None]
  - MEDICAL DEVICE COMPLICATION [None]
  - PHARMACEUTICAL PRODUCT COMPLAINT [None]
  - RENAL TRANSPLANT [None]
